FAERS Safety Report 6187942-4 (Version None)
Quarter: 2009Q2

REPORT INFORMATION
  Report Type: 
  Country: None (occurrence: None)
  Receive Date: 20090513
  Receipt Date: 20090430
  Transmission Date: 20091009
  Serious: Yes (Hospitalization, Other)
  Sender: FDA-Public Use
  Company Number: JP-ASTRAZENECA-2009AC01091

PATIENT
  Age: 72 Year
  Sex: Male

DRUGS (9)
  1. MEROPEN [Suspect]
     Indication: LIVER ABSCESS
     Route: 065
     Dates: start: 20080814, end: 20080818
  2. EPADEL [Concomitant]
  3. OZEX [Concomitant]
     Dates: start: 20080807
  4. BIOFERMIN [Concomitant]
     Dates: start: 20080807
  5. TANNALBIN [Concomitant]
     Dates: start: 20080807
  6. CEFAMEZIN [Concomitant]
     Dates: start: 20080810, end: 20080810
  7. CEFAMEZIN [Concomitant]
     Dates: start: 20080819, end: 20080819
  8. CEFCAPENE [Concomitant]
  9. FLOMOX [Concomitant]
     Route: 048
     Dates: start: 20080810

REACTIONS (5)
  - EOSINOPHILIA [None]
  - HEPATIC FUNCTION ABNORMAL [None]
  - PYREXIA [None]
  - RASH [None]
  - WHITE BLOOD CELL COUNT INCREASED [None]
